FAERS Safety Report 5023169-7 (Version None)
Quarter: 2006Q2

REPORT INFORMATION
  Report Type: 
  Country: None (occurrence: None)
  Receive Date: 20060612
  Receipt Date: 20050215
  Transmission Date: 20061013
  Serious: Yes (Other)
  Sender: FDA-Public Use
  Company Number: US-JNJFOC-20050204023

PATIENT
  Age: 71 Year
  Sex: Female

DRUGS (5)
  1. DITROPAN XL [Suspect]
     Route: 048
  2. DITROPAN XL [Suspect]
     Indication: HYPERTONIC BLADDER
     Route: 048
  3. NORVASC [Concomitant]
  4. CLONIDINE [Concomitant]
  5. ZYRTEC [Concomitant]

REACTIONS (2)
  - GLAUCOMA [None]
  - VISION BLURRED [None]
